FAERS Safety Report 6092138-0 (Version None)
Quarter: 2009Q1

REPORT INFORMATION
  Report Type: 
  Country: None (occurrence: None)
  Receive Date: 20090223
  Receipt Date: 20090209
  Transmission Date: 20090719
  Serious: Yes (Other)
  Sender: FDA-Public Use
  Company Number: SPV1-2008-02830

PATIENT
  Age: 40 Year
  Sex: Female

DRUGS (4)
  1. LIALDA [Suspect]
     Indication: INFLAMMATORY BOWEL DISEASE
     Dosage: 1.2 G, ORAL
     Route: 048
     Dates: start: 20070101
  2. MERCAPTOPURINE [Concomitant]
  3. ATIVAN [Concomitant]
  4. KLOR-CON [Concomitant]

REACTIONS (1)
  - MULTIPLE SCLEROSIS [None]
